FAERS Safety Report 12980222 (Version 2)
Quarter: 2017Q1

REPORT INFORMATION
  Report Type: Spontaneous
  Country: US (occurrence: US)
  Receive Date: 20161128
  Receipt Date: 20170130
  Transmission Date: 20170428
  Serious: Yes (Hospitalization, Other)
  Sender: FDA-Public Use
  Company Number: US-SA-2016SA214194

PATIENT
  Age: 61 Year
  Sex: Female

DRUGS (14)
  1. CYPROHEPTADINE. [Concomitant]
     Active Substance: CYPROHEPTADINE
  2. POTASSIUM [Concomitant]
     Active Substance: POTASSIUM
  3. MORPHINE [Concomitant]
     Active Substance: MORPHINE
  4. VITAMIN B12 [Concomitant]
     Active Substance: CYANOCOBALAMIN
  5. LOPID [Concomitant]
     Active Substance: GEMFIBROZIL
  6. PANCRELIPASE. [Concomitant]
     Active Substance: PANCRELIPASE
  7. CARVEDILOL. [Concomitant]
     Active Substance: CARVEDILOL
  8. XANAX [Concomitant]
     Active Substance: ALPRAZOLAM
  9. AUBAGIO [Suspect]
     Active Substance: TERIFLUNOMIDE
     Indication: MULTIPLE SCLEROSIS
     Route: 048
     Dates: start: 20150923
  10. BACLOFEN. [Concomitant]
     Active Substance: BACLOFEN
  11. PROTONIX [Concomitant]
     Active Substance: PANTOPRAZOLE SODIUM
  12. FUROSEMIDE. [Concomitant]
     Active Substance: FUROSEMIDE
  13. LISINOPRIL. [Concomitant]
     Active Substance: LISINOPRIL
  14. BUPROPION. [Concomitant]
     Active Substance: BUPROPION

REACTIONS (4)
  - Malaise [Unknown]
  - Colitis [Unknown]
  - Pancreatitis [Unknown]
  - Pneumonia [Unknown]

NARRATIVE: CASE EVENT DATE: 20161102
